FAERS Safety Report 13041002 (Version 1)
Quarter: 2016Q4

REPORT INFORMATION
  Report Type: Spontaneous
  Country: US (occurrence: US)
  Receive Date: 20161219
  Receipt Date: 20161219
  Transmission Date: 20170207
  Serious: Yes (Other)
  Sender: FDA-Public Use
  Company Number: US-TEVA-720673ACC

PATIENT
  Sex: Female

DRUGS (1)
  1. PARAGARD T 380A [Suspect]
     Active Substance: COPPER
     Dates: start: 201608

REACTIONS (5)
  - Pelvic inflammatory disease [Unknown]
  - Device breakage [Unknown]
  - Vaginal haemorrhage [Unknown]
  - Device expulsion [Unknown]
  - Pain [Unknown]
